FAERS Safety Report 6758446-2 (Version None)
Quarter: 2010Q2

REPORT INFORMATION
  Report Type: 
  Country: None (occurrence: None)
  Receive Date: 20100607
  Receipt Date: 20100601
  Transmission Date: 20101027
  Serious: Yes (Death)
  Sender: FDA-Public Use
  Company Number: A0862244A

PATIENT
  Age: 40 Year
  Sex: Female

DRUGS (7)
  1. ADVAIR DISKUS 100/50 [Suspect]
     Indication: ASTHMA
     Dosage: 1PUFF PER DAY
     Route: 055
  2. LISINOPRIL AND HYDROCHLOROTHIAZIDE [Concomitant]
  3. PROAIR HFA [Concomitant]
  4. PHENERGAN [Concomitant]
  5. METFORMIN [Concomitant]
  6. PRAVASTATIN [Concomitant]
  7. NEBULIZER [Concomitant]

REACTIONS (1)
  - DEATH [None]
